FAERS Safety Report 15734052 (Version 1)
Quarter: 2018Q4

REPORT INFORMATION
  Report Type: Spontaneous
  Country: JP (occurrence: JP)
  Receive Date: 20181218
  Receipt Date: 20181218
  Transmission Date: 20190205
  Serious: Yes (Other)
  Sender: FDA-Public Use
  Company Number: JP-BAUSCH-BL-2018-035015

PATIENT
  Age: 11 Month
  Sex: Female

DRUGS (3)
  1. BUSULFAN. [Interacting]
     Active Substance: BUSULFAN
     Indication: BONE MARROW CONDITIONING REGIMEN
     Dosage: FROM DAY-6 TO-3
     Route: 042
  2. DEXAMETHASONE. [Suspect]
     Active Substance: DEXAMETHASONE
     Indication: BONE MARROW CONDITIONING REGIMEN
     Dosage: FROM DAY-7 TO-1
     Route: 065
  3. CLOFARABINE. [Concomitant]
     Active Substance: CLOFARABINE
     Indication: BONE MARROW CONDITIONING REGIMEN
     Dosage: FROM DAY-7 TO-3
     Route: 042

REACTIONS (2)
  - Drug level decreased [Unknown]
  - Drug interaction [Unknown]
